FAERS Safety Report 6688125-1 (Version None)
Quarter: 2010Q2

REPORT INFORMATION
  Report Type: 
  Country: None (occurrence: None)
  Receive Date: 20100420
  Receipt Date: 20100413
  Transmission Date: 20101027
  Serious: Yes (Hospitalization, Other)
  Sender: FDA-Public Use
  Company Number: JP-PFIZER INC-2010033349

PATIENT
  Age: 17 Year
  Sex: Female
  Weight: 42 kg

DRUGS (7)
  1. ATARAX [Suspect]
     Indication: NAUSEA
     Dosage: 25 MG, AS NEEDED
     Dates: start: 20091215, end: 20100311
  2. ATARAX [Suspect]
     Indication: INSOMNIA
  3. ATARAX [Suspect]
     Indication: ABDOMINAL PAIN
  4. ZOVIRAX [Suspect]
     Indication: PROPHYLAXIS
     Dosage: 200 MG, DAILY
     Route: 048
     Dates: start: 20100126
  5. SANDIMMUNE [Suspect]
     Indication: PROPHYLAXIS
     Dosage: 120 MG, DAILY
     Route: 042
     Dates: start: 20091221, end: 20100123
  6. MEROPEN [Suspect]
     Indication: INFECTION
     Dosage: FREQUENCY: 2X/DAY,
     Route: 042
     Dates: start: 20091221, end: 20100224
  7. AMBISOME [Suspect]
     Indication: INFECTION
     Dosage: 50 MG, DAILY
     Route: 042
     Dates: start: 20091128, end: 20100305

REACTIONS (1)
  - PERSONALITY CHANGE [None]
